FAERS Safety Report 7142342-5 (Version None)
Quarter: 2010Q4

REPORT INFORMATION
  Report Type: 
  Country: None (occurrence: None)
  Receive Date: 20101207
  Receipt Date: 20101129
  Transmission Date: 20110411
  Serious: Yes (Other)
  Sender: FDA-Public Use
  Company Number: US-ELI_LILLY_AND_COMPANY-US201009001015

PATIENT
  Sex: Female

DRUGS (12)
  1. FORTEO [Suspect]
     Indication: OSTEOPOROSIS
     Dosage: 20 UG, DAILY (1/D)
     Dates: start: 20100826, end: 20101008
  2. FORTEO [Suspect]
     Dosage: 20 UG, DAILY (1/D)
  3. COUMADIN [Concomitant]
  4. LIPITOR [Concomitant]
     Dosage: 40 MG, DAILY (1/D)
  5. LASIX [Concomitant]
     Dosage: 40 MG, DAILY (1/D)
  6. DILTIAZEM [Concomitant]
     Dosage: 120 MG, DAILY (1/D)
  7. LISINOPRIL [Concomitant]
     Dosage: 30 MG, DAILY (1/D)
  8. OMEPRAZOLE [Concomitant]
     Dosage: 20 MG, DAILY (1/D)
  9. POTASSIUM CHLORIDE [Concomitant]
     Dosage: 10 MG, 2/D
  10. MULTI-VITAMINS [Concomitant]
     Dosage: 1 D/F, DAILY (1/D)
  11. VITAMIN D [Concomitant]
     Dosage: 1 D/F, DAILY (1/D)
  12. VICODIN [Concomitant]
     Dosage: 1 D/F, DAILY (1/D)

REACTIONS (1)
  - RENAL FAILURE ACUTE [None]
